FAERS Safety Report 8339407-9 (Version None)
Quarter: 2012Q2

REPORT INFORMATION
  Report Type: 
  Country: None (occurrence: None)
  Receive Date: 20120507
  Receipt Date: 20120430
  Transmission Date: 20120825
  Serious: Yes (Hospitalization)
  Sender: FDA-Public Use
  Company Number: US-B.I. PHARMACEUTICALS,INC./RIDGEFIELD-2012-BP-09811BP

PATIENT
  Sex: Female

DRUGS (5)
  1. OXYGEN [Concomitant]
     Indication: ASTHMA
     Route: 055
  2. PREDNISONE TAB [Concomitant]
     Indication: ASTHMA
     Route: 048
  3. SPIRIVA [Suspect]
     Indication: ASTHMA
     Dosage: 18 MCG
     Route: 055
     Dates: start: 20120101
  4. ATROVENT [Concomitant]
     Indication: ASTHMA
  5. ALBUTEROL [Concomitant]
     Indication: ASTHMA

REACTIONS (3)
  - ASTHMA [None]
  - SPUTUM DISCOLOURED [None]
  - PNEUMONIA [None]
